FAERS Safety Report 4388542-9 (Version None)
Quarter: 2004Q2

REPORT INFORMATION
  Report Type: 
  Country: None (occurrence: None)
  Receive Date: 20040625
  Receipt Date: 20040614
  Transmission Date: 20050107
  Serious: Yes (Death, Disabling)
  Sender: FDA-Public Use
  Company Number: 2004JP000972

PATIENT
  Age: 59 Year
  Sex: Male
  Weight: 63 kg

DRUGS (6)
  1. PROGRAF [Suspect]
     Indication: BONE MARROW TRANSPLANT
     Dosage: UNK MG, UID/QD, INTRAVENOUS
     Route: 042
     Dates: start: 20031208, end: 20031220
  2. PROGRAF [Suspect]
     Dosage: UNK MG, ORAL
     Route: 048
     Dates: start: 20031220, end: 20040206
  3. PROGRAF [Suspect]
     Dosage: 0.31 MG, UID/QD, INTRAVENOUS
     Route: 042
     Dates: start: 20040303, end: 20040308
  4. PROGRAF [Suspect]
     Dosage: 0.63 MG, UID/QD, INTRAVENOUS
     Route: 042
     Dates: start: 20040308, end: 20040311
  5. PROGRAF [Suspect]
     Dosage: 0.31 MG, UID/QD, INTRAVENOUS
     Route: 042
     Dates: start: 20040311, end: 20040317
  6. PROGRAF [Suspect]
     Dosage: 0.13 MG, UID/QD, INTRAVENOUS
     Route: 042
     Dates: start: 20040317, end: 20040325

REACTIONS (10)
  - BRAIN MASS [None]
  - CEREBRAL HAEMORRHAGE [None]
  - DEPRESSED LEVEL OF CONSCIOUSNESS [None]
  - DISORIENTATION [None]
  - GRAFT VERSUS HOST DISEASE [None]
  - INFECTION [None]
  - NERVOUS SYSTEM DISORDER [None]
  - PULMONARY CAVITATION [None]
  - PULMONARY MYCOSIS [None]
  - SOMNOLENCE [None]
